FAERS Safety Report 17552082 (Version 2)
Quarter: 2020Q2

REPORT INFORMATION
  Report Type: Spontaneous
  Country: US (occurrence: US)
  Receive Date: 20200317
  Receipt Date: 20200410
  Transmission Date: 20200713
  Serious: Yes (Other)
  Sender: FDA-Public Use
  Company Number: US-SHIRE-US202009691

PATIENT
  Age: 65 Year
  Sex: Female

DRUGS (1)
  1. VPRIV [Suspect]
     Active Substance: VELAGLUCERASE ALFA
     Indication: GAUCHER^S DISEASE
     Dosage: UNK (9 VIALS), 2X A MONTH (BIMONTHLY)
     Route: 042
     Dates: start: 20100921

REACTIONS (2)
  - Oesophageal spasm [Recovered/Resolved]
  - Inappropriate schedule of product administration [Unknown]

NARRATIVE: CASE EVENT DATE: 20200407
